FAERS Safety Report 10497863 (Version 1)
Quarter: 2014Q4

REPORT INFORMATION
  Report Type: Spontaneous
  Country: GB (occurrence: GB)
  Receive Date: 20141006
  Receipt Date: 20141006
  Transmission Date: 20150528
  Serious: Yes (Other)
  Sender: FDA-Public Use
  Company Number: GB-TEVA-437302ISR

PATIENT
  Age: 70 Year
  Sex: Male

DRUGS (7)
  1. PARACETAMOL [Concomitant]
     Active Substance: ACETAMINOPHEN
     Dosage: 2 DOSAGE FORMS DAILY; AT NIGHT.
  2. RISEDRONIC ACID [Suspect]
     Active Substance: RISEDRONIC ACID
     Indication: BONE DENSITY ABNORMAL
     Dosage: MAINTAINING BONE DENSITY
     Dates: start: 20130804, end: 20130804
  3. GLUCOSAMINE SULPHATE [Concomitant]
     Active Substance: GLUCOSAMINE
  4. ALENDRONIC ACID [Suspect]
     Active Substance: ALENDRONIC ACID
  5. BENDROFLUMETHIAZIDE [Concomitant]
     Active Substance: BENDROFLUMETHIAZIDE
     Indication: FLUID RETENTION
  6. PREDNISOLONE. [Concomitant]
     Active Substance: PREDNISOLONE
     Indication: RHEUMATOID ARTHRITIS
     Dosage: 10 MILLIGRAM DAILY; 2 X 5MG
  7. ADCAL [Concomitant]
     Indication: CALCIUM DEFICIENCY
     Dosage: 2 DOSAGE FORMS DAILY;

REACTIONS (7)
  - Melanocytic naevus [Recovered/Resolved]
  - Scab [Recovered/Resolved]
  - Oral pain [Recovered/Resolved]
  - Erythema [Recovered/Resolved]
  - Eye disorder [Not Recovered/Not Resolved]
  - Oral mucosal exfoliation [Recovered/Resolved]
  - Conjunctivitis [Not Recovered/Not Resolved]
